FAERS Safety Report 5631419-9 (Version None)
Quarter: 2008Q1

REPORT INFORMATION
  Report Type: 
  Country: None (occurrence: None)
  Receive Date: 20080212
  Receipt Date: 20080204
  Transmission Date: 20080703
  Serious: Yes (Death)
  Sender: FDA-Public Use
  Company Number: 2008-00878

PATIENT
  Age: 52 Year
  Sex: Female

DRUGS (5)
  1. FORTAMET [Suspect]
  2. ... [Concomitant]
  3. ... [Concomitant]
  4. ... [Concomitant]
  5. ... [Concomitant]

REACTIONS (1)
  - DEATH [None]
